FAERS Safety Report 6085299-0 (Version None)
Quarter: 2009Q1

REPORT INFORMATION
  Report Type: 
  Country: None (occurrence: None)
  Receive Date: 20090212
  Receipt Date: 20081124
  Transmission Date: 20090719
  Serious: Yes (Other)
  Sender: FDA-Public Use
  Company Number: WWISSUE-239

PATIENT
  Sex: Female

DRUGS (3)
  1. AMOXICILLIN [Suspect]
     Indication: BRONCHITIS
     Dosage: 500 MG 3X A DAY, ORAL
     Route: 048
     Dates: start: 20081120, end: 20081122
  2. AMOXICILLIN [Suspect]
     Indication: SINUSITIS
     Dosage: 500 MG 3X A DAY, ORAL
     Route: 048
     Dates: start: 20081120, end: 20081122
  3. TYLENOL W/ CODEINE [Concomitant]

REACTIONS (2)
  - DRUG INEFFECTIVE [None]
  - PALPITATIONS [None]
